FAERS Safety Report 5330217-3 (Version None)
Quarter: 2007Q2

REPORT INFORMATION
  Report Type: 
  Country: None (occurrence: None)
  Receive Date: 20070521
  Receipt Date: 20070508
  Transmission Date: 20071010
  Serious: No
  Sender: FDA-Public Use
  Company Number: US-ELI_LILLY_AND_COMPANY-US200704005762

PATIENT
  Sex: Female

DRUGS (12)
  1. SULAR [Concomitant]
  2. LOVASTATIN [Concomitant]
  3. COREG [Concomitant]
  4. BUMETANIDE [Concomitant]
  5. LASIX [Concomitant]
  6. ASPIRIN [Concomitant]
     Dosage: 81 MG, UNK
  7. VITAMIN CAP [Concomitant]
  8. POLYCARBOPHIL [Concomitant]
  9. FISH OIL [Concomitant]
  10. CALCIUM W/VITAMIN D NOS [Concomitant]
  11. CYMBALTA [Suspect]
     Indication: PAIN
     Dosage: 60 MG, UNK
     Dates: start: 20070201
  12. INSULIN [Concomitant]
     Indication: DIABETES MELLITUS NON-INSULIN-DEPENDENT

REACTIONS (4)
  - ABNORMAL DREAMS [None]
  - INCREASED APPETITE [None]
  - INSOMNIA [None]
  - NAUSEA [None]
